FAERS Safety Report 19917477 (Version 2)
Quarter: 2021Q4

REPORT INFORMATION
  Report Type: Spontaneous
  Country: US (occurrence: US)
  Receive Date: 20211005
  Receipt Date: 20211025
  Transmission Date: 20220304
  Serious: Yes (Hospitalization, Other)
  Sender: FDA-Public Use
  Company Number: US-LUPIN PHARMACEUTICALS INC.-2021-18536

PATIENT
  Age: 55 Year
  Sex: Male

DRUGS (21)
  1. OXYCODONE [Suspect]
     Active Substance: OXYCODONE
     Indication: Analgesic intervention supportive therapy
     Dosage: 60 MILLIGRAM
     Route: 048
  2. OXYCODONE [Suspect]
     Active Substance: OXYCODONE
     Indication: Cancer pain
     Dosage: UNK (DOSE DECREASED)
     Route: 048
  3. OXYCODONE [Suspect]
     Active Substance: OXYCODONE
     Dosage: 25 MILLIGRAM
     Route: 048
  4. HYDROMORPHONE [Suspect]
     Active Substance: HYDROMORPHONE
     Indication: Analgesic intervention supportive therapy
     Dosage: 5 MILLIGRAM
     Route: 042
  5. HYDROMORPHONE [Suspect]
     Active Substance: HYDROMORPHONE
     Indication: Cancer pain
     Dosage: UNK (DOSE DECREASED)
     Route: 042
  6. HYDROMORPHONE [Suspect]
     Active Substance: HYDROMORPHONE
     Dosage: 1 MILLIGRAM
     Route: 042
  7. HYDROMORPHONE [Suspect]
     Active Substance: HYDROMORPHONE
     Dosage: 2 MILLIGRAM
     Route: 042
  8. FENTANYL [Suspect]
     Active Substance: FENTANYL
     Indication: Analgesic intervention supportive therapy
     Dosage: 12 MICROGRAM EVERY HOUR
     Route: 062
  9. FENTANYL [Suspect]
     Active Substance: FENTANYL
     Indication: Cancer pain
  10. METHADONE [Suspect]
     Active Substance: METHADONE HYDROCHLORIDE
     Indication: Analgesic intervention supportive therapy
     Dosage: 30 MILLIGRAM
     Route: 048
  11. METHADONE [Suspect]
     Active Substance: METHADONE HYDROCHLORIDE
     Indication: Cancer pain
     Dosage: UNK (DOSE DECREASED)
     Route: 048
  12. METHADONE [Suspect]
     Active Substance: METHADONE HYDROCHLORIDE
     Dosage: 60 MILLIGRAM
     Route: 048
  13. METHADONE [Suspect]
     Active Substance: METHADONE HYDROCHLORIDE
     Dosage: 25 MILLIGRAM
     Route: 048
  14. KETOROLAC [Concomitant]
     Active Substance: KETOROLAC TROMETHAMINE
     Indication: Cancer pain
     Dosage: UNK
     Route: 065
  15. KETOROLAC [Concomitant]
     Active Substance: KETOROLAC TROMETHAMINE
     Indication: Analgesic intervention supportive therapy
  16. KETALAR [Concomitant]
     Active Substance: KETAMINE HYDROCHLORIDE
     Indication: Cancer pain
     Dosage: 100 MILLIGRAM (THE STANDARD CONCENTRATION OF THE CONTINUOUS INFUSION OF KETAMINE (KETALAR) WAS 100 M
     Route: 042
  17. LIPITOR [Concomitant]
     Active Substance: ATORVASTATIN CALCIUM
     Indication: Dyslipidaemia
     Dosage: UNK
     Route: 065
  18. DULCOLAX NOS [Concomitant]
     Active Substance: BISACODYL OR DOCUSATE SODIUM
     Indication: Product used for unknown indication
     Dosage: UNK
     Route: 065
  19. GABAPENTIN [Concomitant]
     Active Substance: GABAPENTIN
     Indication: Product used for unknown indication
     Dosage: UNK
     Route: 065
  20. TOPROL XL [Concomitant]
     Active Substance: METOPROLOL SUCCINATE
     Indication: Hypertension
     Dosage: UNK
     Route: 065
  21. DEXTROSE [Concomitant]
     Active Substance: DEXTROSE
     Indication: Vehicle solution use
     Dosage: 100 MILLILITER (THE STANDARD CONCENTRATION OF THE CONTINUOUS INFUSION OF KETAMINE (KETALAR) WAS 100
     Route: 042

REACTIONS (6)
  - Constipation [Recovering/Resolving]
  - Nausea [Recovering/Resolving]
  - Urinary retention [Recovering/Resolving]
  - Lethargy [Recovering/Resolving]
  - Drug dependence [Recovering/Resolving]
  - Drug tolerance increased [Recovering/Resolving]
